FAERS Safety Report 8331404-2 (Version None)
Quarter: 2012Q2

REPORT INFORMATION
  Report Type: 
  Country: None (occurrence: None)
  Receive Date: 20120502
  Receipt Date: 20120423
  Transmission Date: 20120825
  Serious: Yes (Other)
  Sender: FDA-Public Use
  Company Number: DE-ROCHE-1029622

PATIENT
  Sex: Male

DRUGS (10)
  1. LANTUS [Concomitant]
  2. VIREAD [Concomitant]
     Indication: HIV INFECTION
  3. FUZEON [Suspect]
     Indication: HIV INFECTION
     Route: 058
     Dates: start: 20100101
  4. METFORMIN HCL [Concomitant]
  5. NORVIR [Concomitant]
     Indication: HIV INFECTION
  6. RETROVIR [Concomitant]
     Indication: HIV INFECTION
  7. GLIMEPIRIDA [Concomitant]
  8. EPIVIR [Concomitant]
     Indication: HIV INFECTION
     Dosage: DAYS
  9. PREZISTA [Concomitant]
     Indication: HIV INFECTION
  10. ISENTRESS [Concomitant]

REACTIONS (2)
  - INJECTION SITE NODULE [None]
  - SKIN FIBROSIS [None]
